FAERS Safety Report 9570834 (Version 2)
Quarter: 2013Q4

REPORT INFORMATION
  Report Type: Spontaneous
  Country: US (occurrence: US)
  Receive Date: 20131001
  Receipt Date: 20131112
  Transmission Date: 20140711
  Serious: Yes (Hospitalization, Other)
  Sender: FDA-Public Use
  Company Number: US-TEVA-434553USA

PATIENT
  Age: 45 Year
  Sex: 0

DRUGS (2)
  1. COPAXONE [Suspect]
     Indication: MULTIPLE SCLEROSIS
  2. GILENYA [Suspect]
     Indication: MULTIPLE SCLEROSIS

REACTIONS (9)
  - Multiple sclerosis [Not Recovered/Not Resolved]
  - Gastritis [Recovered/Resolved]
  - Vomiting [Recovered/Resolved]
  - Urinary tract infection [Recovered/Resolved with Sequelae]
  - Pneumonia [Recovered/Resolved with Sequelae]
  - Gastrointestinal infection [Unknown]
  - Asthenia [Not Recovered/Not Resolved]
  - Dysphagia [Unknown]
  - Infection [Unknown]
